FAERS Safety Report 24861500 (Version 1)
Quarter: 2025Q1

REPORT INFORMATION
  Report Type: Report from Study
  Country: US (occurrence: US)
  Receive Date: 20250120
  Receipt Date: 20250120
  Transmission Date: 20250409
  Serious: Yes (Hospitalization)
  Sender: ABBVIE
  Company Number: US-ABBVIE-6090517

PATIENT
  Age: 31 Year
  Sex: Female

DRUGS (1)
  1. RINVOQ [Suspect]
     Active Substance: UPADACITINIB
     Indication: Ankylosing spondylitis
     Route: 048
     Dates: start: 20241230

REACTIONS (8)
  - Kidney infection [Unknown]
  - Hepatic enzyme increased [Unknown]
  - Abdominal pain upper [Not Recovered/Not Resolved]
  - Diarrhoea [Not Recovered/Not Resolved]
  - Hydronephrosis [Unknown]
  - Nephrolithiasis [Unknown]
  - Ovarian mass [Unknown]
  - Single functional kidney [Unknown]

NARRATIVE: CASE EVENT DATE: 20241201
